FAERS Safety Report 24691905 (Version 2)
Quarter: 2024Q4

REPORT INFORMATION
  Report Type: Spontaneous
  Country: GR (occurrence: GR)
  Receive Date: 20241203
  Receipt Date: 20241206
  Transmission Date: 20250115
  Serious: No
  Sender: PFIZER
  Company Number: GR-PFIZER INC-PV202400153265

PATIENT
  Age: 10 Year
  Sex: Female
  Weight: 26.5 kg

DRUGS (1)
  1. GENOTROPIN [Suspect]
     Active Substance: SOMATROPIN
     Indication: Growth hormone deficiency
     Dosage: 1.0MG AND 1.2MG ALTERNATE / 6 DAYS
     Route: 058
     Dates: start: 20241118

REACTIONS (2)
  - Device leakage [Not Recovered/Not Resolved]
  - Wrong technique in device usage process [Unknown]
